FAERS Safety Report 4740885-2 (Version None)
Quarter: 2005Q3

REPORT INFORMATION
  Report Type: 
  Country: None (occurrence: None)
  Receive Date: 20050810
  Receipt Date: 20050427
  Transmission Date: 20060218
  Serious: No
  Sender: FDA-Public Use
  Company Number: US-GLAXOSMITHKLINE-A0555961A

PATIENT
  Age: 19 Year
  Sex: Female

DRUGS (2)
  1. TAGAMET HB 200 [Suspect]
     Dates: start: 20050425, end: 20050426
  2. TAGAMET HB 200 [Suspect]

REACTIONS (2)
  - DRUG EXPOSURE DURING PREGNANCY [None]
  - DRUG INEFFECTIVE [None]
